FAERS Safety Report 6161325-5 (Version None)
Quarter: 2009Q2

REPORT INFORMATION
  Report Type: 
  Country: None (occurrence: None)
  Receive Date: 20090417
  Receipt Date: 20090417
  Transmission Date: 20091009
  Serious: Yes (Hospitalization)
  Sender: FDA-Public Use
  Company Number: None

PATIENT
  Sex: Female
  Weight: 76.2043 kg

DRUGS (1)
  1. DILTIAZEM [Suspect]
     Dosage: OTO TOP
     Route: 061
     Dates: start: 20090325, end: 20090325

REACTIONS (8)
  - ACCIDENTAL EXPOSURE [None]
  - BRADYCARDIA [None]
  - CHEST DISCOMFORT [None]
  - FEELING ABNORMAL [None]
  - FEELING HOT [None]
  - FLUSHING [None]
  - MEDICATION ERROR [None]
  - NAUSEA [None]
